FAERS Safety Report 6027571-6 (Version None)
Quarter: 2009Q1

REPORT INFORMATION
  Report Type: 
  Country: None (occurrence: None)
  Receive Date: 20090105
  Receipt Date: 20081224
  Transmission Date: 20090719
  Serious: Yes (Hospitalization, Other)
  Sender: FDA-Public Use
  Company Number: PHHO2007JP06260

PATIENT
  Sex: Female
  Weight: 48 kg

DRUGS (3)
  1. GLEEVEC [Suspect]
     Indication: GASTROINTESTINAL STROMAL TUMOUR
     Dosage: 400 MG, QD
     Route: 048
     Dates: start: 20030801, end: 20030918
  2. GLEEVEC [Suspect]
     Dosage: 400 MG, QD
     Route: 048
     Dates: start: 20030926, end: 20070323
  3. GLEEVEC [Suspect]
     Dosage: 200 MG, QD
     Route: 048
     Dates: start: 20070324

REACTIONS (9)
  - ANAEMIA [None]
  - HYPOPROTEINAEMIA [None]
  - HYPOTHYROIDISM [None]
  - MALAISE [None]
  - OEDEMA [None]
  - PLEURAL EFFUSION [None]
  - RASH [None]
  - RENAL DISORDER [None]
  - WHITE BLOOD CELL COUNT DECREASED [None]
